FAERS Safety Report 6856103-5 (Version None)
Quarter: 2010Q2

REPORT INFORMATION
  Report Type: 
  Country: None (occurrence: None)
  Receive Date: 20100629
  Receipt Date: 20100519
  Transmission Date: 20101027
  Serious: No
  Sender: FDA-Public Use
  Company Number: US-WYE-H15260110

PATIENT
  Sex: Female

DRUGS (1)
  1. PRISTIQ [Suspect]
     Dosage: ORAL
     Route: 048
     Dates: start: 20100321, end: 20100327

REACTIONS (4)
  - DRUG WITHDRAWAL SYNDROME [None]
  - MALAISE [None]
  - MOBILITY DECREASED [None]
  - NAUSEA [None]
